FAERS Safety Report 19264511 (Version 2)
Quarter: 2021Q2

REPORT INFORMATION
  Report Type: Report from Study
  Country: KR (occurrence: KR)
  Receive Date: 20210517
  Receipt Date: 20210524
  Transmission Date: 20210717
  Serious: Yes (Hospitalization)
  Sender: FDA-Public Use
  Company Number: KR-MACROGENICS-2021000119

PATIENT
  Age: 78 Year
  Sex: Female
  Weight: 39.2 kg

DRUGS (14)
  1. MARGETUXIMAB. [Suspect]
     Active Substance: MARGETUXIMAB
     Indication: GASTRIC CANCER
     Dosage: 15 MILLIGRAM/KILOGRAM, Q3WEEKS
     Route: 042
     Dates: start: 20201104, end: 20201104
  2. ULTRACET ER SEMI [Concomitant]
     Indication: PREMEDICATION
     Dosage: 1 TABLET DOSING UNIT, QD
     Route: 048
     Dates: start: 20210503, end: 20210503
  3. DUPHALAC EASY [Concomitant]
     Active Substance: LACTULOSE
     Indication: ABDOMINAL PAIN
     Dosage: 15 MILLILITER, TID
     Route: 048
     Dates: start: 20210420, end: 20210502
  4. MEGESTROL ACETATE. [Concomitant]
     Active Substance: MEGESTROL ACETATE
     Indication: NUTRITIONAL SUPPLEMENTATION
     Dosage: 10 MILLILITER, PRN
     Route: 048
     Dates: start: 20210330, end: 20210415
  5. GASTIIN CR [Concomitant]
     Indication: ABDOMINAL PAIN
     Dosage: 15 MILLIGRAM, QD
     Route: 048
     Dates: start: 20210420
  6. MARGETUXIMAB. [Suspect]
     Active Substance: MARGETUXIMAB
     Dosage: 15 MILLIGRAM/KILOGRAM, Q3WEEKS
     Route: 042
     Dates: start: 20210503, end: 20210503
  7. ALLEGRA?D [Concomitant]
     Active Substance: FEXOFENADINE HYDROCHLORIDE\PSEUDOEPHEDRINE HYDROCHLORIDE
     Indication: PRURITUS
     Dosage: 1 TABLET DOSING UNIT, BID
     Route: 048
     Dates: start: 20201215
  8. DESOWEN [Concomitant]
     Active Substance: DESONIDE
     Indication: PRURITUS
     Dosage: 120 MILLILITER, QD
     Route: 061
     Dates: start: 20201215
  9. MAGMIL [Concomitant]
     Active Substance: MAGNESIUM HYDROXIDE
     Indication: MUSCLE SPASMS
     Dosage: 500 MILLIGRAM, BID
     Route: 048
     Dates: start: 20210105
  10. RETIFANLIMAB. [Suspect]
     Active Substance: RETIFANLIMAB
     Dosage: 375 MILLIGRAM, Q3WEEKS
     Route: 042
     Dates: start: 20210503, end: 20210503
  11. MAGO [MAGNESIUM OXIDE] [Concomitant]
     Active Substance: MAGNESIUM OXIDE
     Indication: MUSCLE SPASMS
     Dosage: 500 MILLIGRAM, TID
     Route: 048
     Dates: start: 20210330, end: 20210419
  12. DAGES [OMEPRAZOLE] [Concomitant]
     Indication: ABDOMINAL PAIN
     Dosage: 1 CAPSULE DOSING UNIT, TID
     Route: 048
     Dates: start: 20210420
  13. PENIRAMIN [Concomitant]
     Indication: PREMEDICATION
     Dosage: 4 MILLIGRAM, QD
     Route: 042
     Dates: start: 20210503, end: 20210503
  14. RETIFANLIMAB. [Suspect]
     Active Substance: RETIFANLIMAB
     Indication: GASTRIC CANCER
     Dosage: 375 MILLIGRAM, Q3WEEKS
     Route: 042
     Dates: start: 20201104, end: 20201104

REACTIONS (1)
  - Diabetic ketoacidosis [Recovered/Resolved]

NARRATIVE: CASE EVENT DATE: 20210508
